FAERS Safety Report 10378559 (Version 2)
Quarter: 2014Q3

REPORT INFORMATION
  Report Type: Spontaneous
  Country: JP (occurrence: JP)
  Receive Date: 20140812
  Receipt Date: 20140812
  Transmission Date: 20150326
  Serious: Yes (Other)
  Sender: FDA-Public Use
  Company Number: JP-ASTRAZENECA-2014SE08713

PATIENT
  Age: 54 Year
  Sex: Male
  Weight: 48 kg

DRUGS (11)
  1. DIPRIVAN [Suspect]
     Active Substance: PROPOFOL
     Indication: SEDATION
     Route: 042
     Dates: start: 20131110, end: 20131112
  2. CRAVIT [Suspect]
     Active Substance: LEVOFLOXACIN
     Indication: SEPTIC SHOCK
     Route: 041
     Dates: start: 20131108, end: 20131108
  3. HYDROCORTONE [Suspect]
     Active Substance: HYDROCORTISONE
     Indication: SEPTIC SHOCK
     Route: 041
     Dates: start: 20131108, end: 20131111
  4. MEROPEN [Suspect]
     Active Substance: MEROPENEM
     Indication: SEPTIC SHOCK
     Route: 041
     Dates: start: 20131108, end: 20131113
  5. PREDONINE [Suspect]
     Active Substance: PREDNISOLONE\PREDNISOLONE ACETATE\PREDNISOLONE SODIUM SUCCINATE
     Indication: SEPTIC SHOCK
     Route: 065
     Dates: start: 20131111
  6. OMEPRAL [Suspect]
     Active Substance: OMEPRAZOLE
     Indication: PROPHYLAXIS AGAINST GASTROINTESTINAL ULCER
     Route: 041
     Dates: start: 20131108, end: 20131114
  7. DORMICUM [Concomitant]
     Active Substance: MIDAZOLAM\MIDAZOLAM HYDROCHLORIDE
     Indication: SEPTIC SHOCK
     Route: 042
     Dates: start: 20131108, end: 20131110
  8. NOREPINEPHRINE [Concomitant]
     Active Substance: NOREPINEPHRINE\NOREPINEPHRINE BITARTRATE
     Indication: SEPTIC SHOCK
     Route: 041
     Dates: start: 20131108, end: 20131112
  9. NOVO HEPARIN [Concomitant]
     Active Substance: HEPARIN SODIUM
     Indication: SEPTIC SHOCK
     Route: 065
     Dates: start: 20131108
  10. ELNEOPA NO 1 [Concomitant]
     Indication: SEPTIC SHOCK
     Route: 041
     Dates: start: 20131108
  11. VENILON [Concomitant]
     Active Substance: HUMAN IMMUNOGLOBULIN G
     Indication: HYPOGAMMAGLOBULINAEMIA
     Dates: start: 20131108, end: 20131108

REACTIONS (2)
  - Pancreatitis acute [Recovering/Resolving]
  - Hyperamylasaemia [Not Recovered/Not Resolved]

NARRATIVE: CASE EVENT DATE: 20131113
